FAERS Safety Report 13182647 (Version 1)
Quarter: 2017Q1

REPORT INFORMATION
  Report Type: Other
  Country: CN (occurrence: CN)
  Receive Date: 20170202
  Receipt Date: 20170202
  Transmission Date: 20170428
  Serious: Yes (Life-Threatening)
  Sender: FDA-Public Use
  Company Number: CN-GRANULES INDIA LIMITED-1062682

PATIENT

DRUGS (1)
  1. IBUPROFEN. [Suspect]
     Active Substance: IBUPROFEN
     Indication: PATENT DUCTUS ARTERIOSUS
     Route: 048

REACTIONS (4)
  - Drug ineffective [Unknown]
  - Haemorrhage intracranial [Unknown]
  - Neonatal respiratory distress syndrome [Recovering/Resolving]
  - Off label use [Unknown]
